FAERS Safety Report 6137370-2 (Version None)
Quarter: 2009Q1

REPORT INFORMATION
  Report Type: 
  Country: None (occurrence: None)
  Receive Date: 20090330
  Receipt Date: 20090320
  Transmission Date: 20090719
  Serious: Yes (Other)
  Sender: FDA-Public Use
  Company Number: US-ALLERGAN-0903822US

PATIENT
  Sex: Female

DRUGS (2)
  1. BOTOX COSMETIC [Suspect]
     Indication: SKIN WRINKLING
     Dosage: UNK, SINGLE
     Route: 030
     Dates: start: 20090313, end: 20090313
  2. BOTOX COSMETIC [Suspect]
     Dosage: UNK, SINGLE
     Route: 030
     Dates: start: 20020101, end: 20020101

REACTIONS (15)
  - ABDOMINAL DISCOMFORT [None]
  - ABNORMAL SENSATION IN EYE [None]
  - BURNING SENSATION [None]
  - CHEST DISCOMFORT [None]
  - ERYTHEMA [None]
  - EYELID OEDEMA [None]
  - HEADACHE [None]
  - HYPERSENSITIVITY [None]
  - INJECTION SITE OEDEMA [None]
  - LYMPHADENOPATHY [None]
  - NAUSEA [None]
  - SKIN TIGHTNESS [None]
  - SWELLING FACE [None]
  - TYPE IV HYPERSENSITIVITY REACTION [None]
  - VISION BLURRED [None]
